FAERS Safety Report 14407380 (Version 1)
Quarter: 2018Q1

REPORT INFORMATION
  Report Type: Report from Study
  Country: US (occurrence: US)
  Receive Date: 20180118
  Receipt Date: 20180118
  Transmission Date: 20180509
  Serious: No
  Sender: FDA-Public Use
  Company Number: US-ROCHE-2053887

PATIENT
  Age: 57 Year
  Sex: Female

DRUGS (1)
  1. OCREVUS [Suspect]
     Active Substance: OCRELIZUMAB
     Indication: MULTIPLE SCLEROSIS
     Dosage: PRESCRIBED WITH INTRAVENOUS OCRELIZUMAB INITIAL 300 MG ON DAY 1 AND DAY 15 AND SUBSEQUENT DOSE OF 60
     Route: 042
     Dates: start: 20171031

REACTIONS (7)
  - Rhinorrhoea [Unknown]
  - Ear infection [Unknown]
  - Painful respiration [Unknown]
  - Productive cough [Unknown]
  - Chest pain [Unknown]
  - Throat irritation [Unknown]
  - Cough [Unknown]

NARRATIVE: CASE EVENT DATE: 201712
